FAERS Safety Report 4402801-2 (Version None)
Quarter: 2004Q3

REPORT INFORMATION
  Report Type: 
  Country: None (occurrence: None)
  Receive Date: 20040719
  Receipt Date: 20040709
  Transmission Date: 20050211
  Serious: Yes (Hospitalization, Other)
  Sender: FDA-Public Use
  Company Number: KII-2004-0012135

PATIENT
  Age: 7 Year
  Sex: Male

DRUGS (3)
  1. OXYCONTIN [Suspect]
     Dosage: ORAL
     Route: 048
  2. OXYCODONE HCL [Suspect]
  3. OXYMORPHONE HYDROCHLORIDE [Suspect]

REACTIONS (10)
  - ACCIDENTAL OVERDOSE [None]
  - APNOEA [None]
  - CHOKING [None]
  - COMA [None]
  - DRUG WITHDRAWAL SYNDROME [None]
  - HEADACHE [None]
  - LETHARGY [None]
  - MYDRIASIS [None]
  - SOMNOLENCE [None]
  - VOMITING [None]
